FAERS Safety Report 4919810-7 (Version None)
Quarter: 2006Q1

REPORT INFORMATION
  Report Type: 
  Country: None (occurrence: None)
  Receive Date: 20060217
  Receipt Date: 20060206
  Transmission Date: 20060701
  Serious: Yes (Hospitalization)
  Sender: FDA-Public Use
  Company Number: US016820

PATIENT
  Age: 62 Year
  Sex: Male

DRUGS (1)
  1. MODAFINILO [Suspect]
     Dates: end: 20020101

REACTIONS (1)
  - CONVULSION [None]
